FAERS Safety Report 4998666-0 (Version None)
Quarter: 2006Q2

REPORT INFORMATION
  Report Type: 
  Country: None (occurrence: None)
  Receive Date: 20060508
  Receipt Date: 20060424
  Transmission Date: 20061013
  Serious: Yes (Other)
  Sender: FDA-Public Use
  Company Number: GB-2006-009658

PATIENT
  Sex: Female

DRUGS (1)
  1. MICROGYNON 30 (ETHINYESTRADIOL, LEVONORGESTREL) COATED TABLET [Suspect]

REACTIONS (2)
  - SKIN CANCER METASTATIC [None]
  - VAGINAL HAEMORRHAGE [None]
